FAERS Safety Report 17900234 (Version 2)
Quarter: 2021Q1

REPORT INFORMATION
  Report Type: Spontaneous
  Country: US (occurrence: US)
  Receive Date: 20200616
  Receipt Date: 20210108
  Transmission Date: 20210419
  Serious: No
  Sender: FDA-Public Use
  Company Number: US-GILEAD-2020-0470179

PATIENT
  Age: 41 Year
  Sex: Female

DRUGS (2)
  1. TRUVADA [Suspect]
     Active Substance: EMTRICITABINE\TENOFOVIR DISOPROXIL FUMARATE
     Dosage: UNK
     Route: 048
     Dates: start: 20151007
  2. TRUVADA [Suspect]
     Active Substance: EMTRICITABINE\TENOFOVIR DISOPROXIL FUMARATE
     Indication: HIV INFECTION
     Dosage: UNK
     Route: 048
     Dates: start: 201501, end: 202001

REACTIONS (3)
  - Tooth loss [Unknown]
  - Bone density decreased [Unknown]
  - Bone pain [Not Recovered/Not Resolved]

NARRATIVE: CASE EVENT DATE: 20160907
